FAERS Safety Report 7200469-3 (Version None)
Quarter: 2010Q4

REPORT INFORMATION
  Report Type: 
  Country: None (occurrence: None)
  Receive Date: 20101214
  Receipt Date: 20101126
  Transmission Date: 20110411
  Serious: Yes (Hospitalization)
  Sender: FDA-Public Use
  Company Number: WAES 1008USA03878

PATIENT
  Age: 60 Year
  Sex: Female

DRUGS (28)
  1. CAP VORINOSTAT [Suspect]
     Indication: B-CELL LYMPHOMA
     Dosage: SEE IMAGE
     Route: 048
     Dates: start: 20090728, end: 20090730
  2. CAP VORINOSTAT [Suspect]
     Indication: B-CELL LYMPHOMA
     Dosage: SEE IMAGE
     Route: 048
     Dates: start: 20090731, end: 20090731
  3. CAP VORINOSTAT [Suspect]
     Indication: B-CELL LYMPHOMA
     Dosage: SEE IMAGE
     Route: 048
     Dates: start: 20090802, end: 20090810
  4. CAP VORINOSTAT [Suspect]
     Indication: B-CELL LYMPHOMA
     Dosage: SEE IMAGE
     Route: 048
     Dates: start: 20090901, end: 20090914
  5. CAP VORINOSTAT [Suspect]
     Indication: B-CELL LYMPHOMA
     Dosage: SEE IMAGE
     Route: 048
     Dates: start: 20091006, end: 20091019
  6. CAP VORINOSTAT [Suspect]
     Indication: B-CELL LYMPHOMA
     Dosage: SEE IMAGE
     Route: 048
     Dates: start: 20091103, end: 20091116
  7. CAP VORINOSTAT [Suspect]
     Indication: B-CELL LYMPHOMA
     Dosage: SEE IMAGE
     Route: 048
     Dates: start: 20091126, end: 20091209
  8. CAP VORINOSTAT [Suspect]
     Indication: B-CELL LYMPHOMA
     Dosage: SEE IMAGE
     Route: 048
     Dates: start: 20091217, end: 20091225
  9. CAP VORINOSTAT [Suspect]
     Indication: B-CELL LYMPHOMA
     Dosage: SEE IMAGE
     Route: 048
     Dates: start: 20091226, end: 20091226
  10. CAP VORINOSTAT [Suspect]
     Indication: B-CELL LYMPHOMA
     Dosage: SEE IMAGE
     Route: 048
     Dates: start: 20091227, end: 20091230
  11. CAP VORINOSTAT [Suspect]
     Indication: B-CELL LYMPHOMA
     Dosage: SEE IMAGE
     Route: 048
     Dates: start: 20100107, end: 20100120
  12. CAP VORINOSTAT [Suspect]
     Indication: B-CELL LYMPHOMA
     Dosage: SEE IMAGE
     Route: 048
     Dates: start: 20100128, end: 20100210
  13. CAP VORINOSTAT [Suspect]
     Indication: B-CELL LYMPHOMA
     Dosage: SEE IMAGE
     Route: 048
     Dates: start: 20100218, end: 20100303
  14. CAP VORINOSTAT [Suspect]
     Indication: B-CELL LYMPHOMA
     Dosage: SEE IMAGE
     Route: 048
     Dates: start: 20100318, end: 20100321
  15. CAP VORINOSTAT [Suspect]
     Indication: B-CELL LYMPHOMA
     Dosage: SEE IMAGE
     Route: 048
     Dates: start: 20100322, end: 20100322
  16. GASLON N [Concomitant]
     Indication: B-CELL LYMPHOMA
     Dosage: SEE IMAGE
     Route: 048
     Dates: start: 20090731, end: 20090731
  17. GASLON N [Concomitant]
     Indication: B-CELL LYMPHOMA
     Dosage: SEE IMAGE
     Route: 048
     Dates: start: 20090802, end: 20090810
  18. GASLON N [Concomitant]
     Indication: B-CELL LYMPHOMA
     Dosage: SEE IMAGE
     Route: 048
     Dates: start: 20090901, end: 20090914
  19. GASLON N [Concomitant]
     Indication: B-CELL LYMPHOMA
     Dosage: SEE IMAGE
     Route: 048
     Dates: start: 20091006, end: 20091019
  20. GASLON N [Concomitant]
     Indication: B-CELL LYMPHOMA
     Dosage: SEE IMAGE
     Route: 048
     Dates: start: 20091103, end: 20091116
  21. GASLON N [Concomitant]
     Indication: B-CELL LYMPHOMA
     Dosage: SEE IMAGE
     Route: 048
     Dates: start: 20091126, end: 20091209
  22. GASLON N [Concomitant]
     Indication: B-CELL LYMPHOMA
     Dosage: SEE IMAGE
     Route: 048
     Dates: start: 20091226, end: 20091226
  23. GASLON N [Concomitant]
     Indication: B-CELL LYMPHOMA
     Dosage: SEE IMAGE
     Route: 048
     Dates: start: 20091227, end: 20091230
  24. GASLON N [Concomitant]
     Indication: B-CELL LYMPHOMA
     Dosage: SEE IMAGE
     Route: 048
     Dates: start: 20100107, end: 20100120
  25. GASLON N [Concomitant]
     Indication: B-CELL LYMPHOMA
     Dosage: SEE IMAGE
     Route: 048
     Dates: start: 20100128, end: 20100210
  26. GASLON N [Concomitant]
     Indication: B-CELL LYMPHOMA
     Dosage: SEE IMAGE
     Route: 048
     Dates: start: 20100218, end: 20100303
  27. GASLON N [Concomitant]
     Indication: B-CELL LYMPHOMA
     Dosage: SEE IMAGE
     Route: 048
     Dates: start: 20100318, end: 20100321
  28. GASLON N [Concomitant]
     Indication: B-CELL LYMPHOMA
     Dosage: SEE IMAGE
     Route: 048
     Dates: start: 20100322, end: 20100322

REACTIONS (3)
  - BREAST CANCER [None]
  - MYOSITIS [None]
  - THROMBOCYTOPENIA [None]
